FAERS Safety Report 21602132 (Version 1)
Quarter: 2022Q4

REPORT INFORMATION
  Report Type: Spontaneous
  Country: CA (occurrence: CA)
  Receive Date: 20221116
  Receipt Date: 20221116
  Transmission Date: 20230113
  Serious: Yes (Hospitalization)
  Sender: FDA-Public Use
  Company Number: None

PATIENT
  Age: 64 Year
  Sex: Female

DRUGS (16)
  1. FLUOROURACIL [Suspect]
     Active Substance: FLUOROURACIL
     Indication: Pancreatic carcinoma
  2. IRINOTECAN HYDROCHLORIDE [Suspect]
     Active Substance: IRINOTECAN HYDROCHLORIDE
     Indication: Pancreatic carcinoma
     Dosage: 1 EVERY 2 WEEKS, SOLUTION INTRAVENOUS, INJECTION USP, 189.0 MILLIGRAM/ MILLILITER
     Route: 042
  3. ACETAMINOPHEN AND CODEINE [Concomitant]
     Active Substance: ACETAMINOPHEN\CODEINE PHOSPHATE
  4. CREON [Concomitant]
     Active Substance: PANCRELIPASE AMYLASE\PANCRELIPASE LIPASE\PANCRELIPASE PROTEASE
  5. DEXAMETHASONE [Concomitant]
     Active Substance: DEXAMETHASONE
     Route: 065
  6. DOMPERIDONE [Concomitant]
     Active Substance: DOMPERIDONE
  7. EMEND [Concomitant]
     Active Substance: APREPITANT
  8. ESTRADIOL [Concomitant]
     Active Substance: ESTRADIOL
  9. LEUCOVORIN [Concomitant]
     Active Substance: LEUCOVORIN
  10. LOPERAMIDE [Concomitant]
     Active Substance: LOPERAMIDE
  11. ONDANSETRON [Concomitant]
     Active Substance: ONDANSETRON
  12. OXALIPLATIN [Concomitant]
     Active Substance: OXALIPLATIN
  13. PANTOPRAZOLE SODIUM [Concomitant]
     Active Substance: PANTOPRAZOLE SODIUM
     Dosage: ENTERIC- COATED
  14. PEGFILGRASTIM [Concomitant]
     Active Substance: PEGFILGRASTIM
  15. PROCHLORPERAZINE [Concomitant]
     Active Substance: PROCHLORPERAZINE
  16. FLUOROURACIL [Suspect]
     Active Substance: FLUOROURACIL
     Indication: Pancreatic carcinoma
     Dosage: 1 EVERY 2 WEEKS, 2515.0 MICROGRA?M PER MILLIGRAM
     Route: 042

REACTIONS (6)
  - Abdominal pain [Recovered/Resolved]
  - Colitis [Recovered/Resolved]
  - Diarrhoea [Recovered/Resolved]
  - Neutropenic colitis [Recovered/Resolved]
  - Transposition of the great vessels [Recovered/Resolved]
  - Vomiting [Recovered/Resolved]
